FAERS Safety Report 24398701 (Version 1)
Quarter: 2024Q4

REPORT INFORMATION
  Report Type: Spontaneous
  Country: US (occurrence: US)
  Receive Date: 20241004
  Receipt Date: 20241004
  Transmission Date: 20250115
  Serious: No
  Sender: JOHNSON AND JOHNSON
  Company Number: US-JNJFOC-20240975815

PATIENT

DRUGS (2)
  1. MACITENTAN\TADALAFIL [Suspect]
     Active Substance: MACITENTAN\TADALAFIL
     Indication: Product used for unknown indication
     Dosage: 10 MG/20MG
     Route: 048
     Dates: start: 20240731, end: 20240804
  2. MACITENTAN\TADALAFIL [Suspect]
     Active Substance: MACITENTAN\TADALAFIL
     Dosage: 10 MG/20MG
     Route: 048
     Dates: start: 20240731, end: 20240808

REACTIONS (8)
  - Illness [Unknown]
  - Nonspecific reaction [Unknown]
  - Chills [Unknown]
  - Burning sensation [Unknown]
  - Headache [Unknown]
  - Dizziness [Unknown]
  - Back pain [Unknown]
  - Weight decreased [Unknown]
